FAERS Safety Report 7121624-7 (Version None)
Quarter: 2010Q4

REPORT INFORMATION
  Report Type: 
  Country: None (occurrence: None)
  Receive Date: 20101124
  Receipt Date: 20101115
  Transmission Date: 20110411
  Serious: No
  Sender: FDA-Public Use
  Company Number: US-PFIZER INC-2010152117

PATIENT
  Sex: Female
  Weight: 70 kg

DRUGS (8)
  1. PRISTIQ [Suspect]
     Indication: STRESS
     Dosage: 50 MG, DAILY
     Dates: start: 20101101
  2. PRISTIQ [Suspect]
     Indication: DEPRESSION
  3. LISINOPRIL [Concomitant]
     Dosage: UNK
  4. BUMEX [Concomitant]
     Dosage: UNK
  5. LIPITOR [Concomitant]
     Dosage: 20 MG, UNK
  6. ASPIRIN [Concomitant]
     Dosage: UNK
  7. ADVAIR [Concomitant]
     Dosage: UNK
  8. SINGULAIR [Concomitant]
     Dosage: UNK

REACTIONS (3)
  - DRUG INEFFECTIVE [None]
  - MEDICATION RESIDUE [None]
  - NAUSEA [None]
